FAERS Safety Report 26209345 (Version 1)
Quarter: 2025Q4

REPORT INFORMATION
  Report Type: Spontaneous
  Country: CN (occurrence: CN)
  Receive Date: 20251229
  Receipt Date: 20251229
  Transmission Date: 20260118
  Serious: Yes (Hospitalization, Other)
  Sender: SANOFI AVENTIS
  Company Number: CN-SA-2025SA382818

PATIENT
  Age: 77 Year
  Sex: Male
  Weight: 60 kg

DRUGS (3)
  1. INSULIN GLARGINE [Suspect]
     Active Substance: INSULIN GLARGINE
     Indication: Diabetes mellitus
     Dosage: 9 U, QD
     Route: 058
     Dates: start: 20251205, end: 202512
  2. INSULIN GLARGINE [Suspect]
     Active Substance: INSULIN GLARGINE
     Dosage: 4 U, HS
     Route: 058
     Dates: start: 20251215
  3. INSULIN ASPART [Suspect]
     Active Substance: INSULIN ASPART
     Indication: Type 1 diabetes mellitus
     Dosage: 6 U, TID (6 U IN THE MORNING, 6 U AT NOON AND 6 U IN THE EVENING, BEFORE MEALS)
     Route: 058
     Dates: start: 20251205

REACTIONS (4)
  - Depressed level of consciousness [Recovering/Resolving]
  - Hypoglycaemic coma [Recovering/Resolving]
  - Unresponsive to stimuli [Recovering/Resolving]
  - Urinary incontinence [Recovering/Resolving]

NARRATIVE: CASE EVENT DATE: 20251215
